FAERS Safety Report 23399615 (Version 2)
Quarter: 2025Q2

REPORT INFORMATION
  Report Type: Report from Study
  Country: JP (occurrence: JP)
  Receive Date: 20240113
  Receipt Date: 20250616
  Transmission Date: 20250716
  Serious: Yes (Death)
  Sender: AMGEN
  Company Number: JP-AMGEN-JPNNI2023224550

PATIENT
  Age: 41 Year
  Sex: Male

DRUGS (28)
  1. SOTORASIB [Suspect]
     Active Substance: SOTORASIB
     Indication: K-ras gene mutation
     Dosage: 960 MILLIGRAM, QD
     Route: 048
     Dates: start: 20220712, end: 20220909
  2. SOTORASIB [Suspect]
     Active Substance: SOTORASIB
     Indication: Squamous cell carcinoma of lung
  3. DENOSUMAB [Concomitant]
     Active Substance: DENOSUMAB
     Route: 058
     Dates: start: 20220718
  4. SYMPROIC [Concomitant]
     Active Substance: NALDEMEDINE TOSYLATE
     Dates: start: 20220726
  5. AMBROXOL HYDROCHLORIDE [Concomitant]
     Active Substance: AMBROXOL HYDROCHLORIDE
  6. CALONAL [Concomitant]
     Active Substance: ACETAMINOPHEN
  7. REBAMIPIDE [Concomitant]
     Active Substance: REBAMIPIDE
     Indication: Prophylaxis
  8. URSODIOL [Concomitant]
     Active Substance: URSODIOL
     Indication: Prophylaxis
  9. Glycyron [Concomitant]
     Indication: Prophylaxis
  10. NAPROXEN SODIUM [Concomitant]
     Active Substance: NAPROXEN SODIUM
  11. VONOPRAZAN FUMARATE [Concomitant]
     Active Substance: VONOPRAZAN FUMARATE
     Indication: Prophylaxis
  12. DIPHENHYDRAMINE [Concomitant]
     Active Substance: DIPHENHYDRAMINE
  13. DAYVIGO [Concomitant]
     Active Substance: LEMBOREXANT
     Indication: Prophylaxis
  14. HYDROXYZINE PAMOATE [Concomitant]
     Active Substance: HYDROXYZINE PAMOATE
     Indication: Prophylaxis
  15. FENTANYL [Concomitant]
     Active Substance: FENTANYL
     Dates: start: 20220912
  16. FENTANYL [Concomitant]
     Active Substance: FENTANYL
     Dates: start: 20220912
  17. EDOXABAN TOSYLATE [Concomitant]
     Active Substance: EDOXABAN TOSYLATE
     Dates: end: 20220814
  18. CODEINE PHOSPHATE [Concomitant]
     Active Substance: CODEINE PHOSPHATE
  19. MORPHINE HYDROCHLORIDE [Concomitant]
     Active Substance: MORPHINE HYDROCHLORIDE
     Route: 048
     Dates: start: 20220726
  20. LOXOPROFEN [Concomitant]
     Active Substance: LOXOPROFEN
     Dates: start: 20220723, end: 20220802
  21. Novamin [Concomitant]
     Indication: Prophylaxis
     Dates: start: 20220726
  22. EDARAVONE [Concomitant]
     Active Substance: EDARAVONE
     Dates: start: 20220722, end: 20220725
  23. HEPARIN SODIUM [Concomitant]
     Active Substance: HEPARIN SODIUM
     Dates: start: 20220722, end: 20220725
  24. SODIUM PICOSULFATE [Concomitant]
     Active Substance: SODIUM PICOSULFATE
     Route: 048
     Dates: start: 20220722
  25. HEPARIN CALCIUM [Concomitant]
     Active Substance: HEPARIN CALCIUM
     Route: 058
     Dates: start: 20220801
  26. HYDROXYZINE HYDROCHLORIDE [Concomitant]
     Active Substance: HYDROXYZINE HYDROCHLORIDE
     Indication: Prophylaxis
     Route: 051
     Dates: start: 20220901, end: 20220901
  27. PENTAZOCINE [Concomitant]
     Active Substance: PENTAZOCINE
     Indication: Prophylaxis
     Dates: start: 20220901, end: 20220901
  28. CEFAZOLIN SODIUM [Concomitant]
     Active Substance: CEFAZOLIN SODIUM
     Indication: Prophylaxis
     Dates: start: 20220901, end: 20220901

REACTIONS (1)
  - Non-small cell lung cancer [Fatal]

NARRATIVE: CASE EVENT DATE: 20220909
